FAERS Safety Report 5376567-6 (Version None)
Quarter: 2007Q2

REPORT INFORMATION
  Report Type: 
  Country: None (occurrence: None)
  Receive Date: 20070629
  Receipt Date: 20070618
  Transmission Date: 20071010
  Serious: Yes (Hospitalization, Other)
  Sender: FDA-Public Use
  Company Number: 2007US001383

PATIENT
  Age: 60 Year
  Sex: Male

DRUGS (5)
  1. AMBISOME [Suspect]
     Indication: BRONCHOPULMONARY ASPERGILLOSIS
     Dosage: 150 MG, IV DRIP
     Route: 041
     Dates: start: 20070525, end: 20070525
  2. VANCOMYCON (VANCOMYCIN HYDROCHLORIDE) [Concomitant]
  3. VENOGLOBULIN-I [Concomitant]
  4. MEROPEN (MEROPENEM) [Concomitant]
  5. NEUPOGEN [Concomitant]

REACTIONS (1)
  - ANAPHYLACTIC REACTION [None]
